FAERS Safety Report 10146850 (Version 1)
Quarter: 2014Q2

REPORT INFORMATION
  Report Type: Spontaneous
  Country: US (occurrence: US)
  Receive Date: 20140501
  Receipt Date: 20140501
  Transmission Date: 20141212
  Serious: No
  Sender: FDA-Public Use
  Company Number: US-009507513-1404USA012208

PATIENT
  Age: 21 Year
  Sex: Female

DRUGS (8)
  1. MIRTAZAPINE [Suspect]
     Indication: ANXIETY
     Route: 048
  2. MIRTAZAPINE [Suspect]
     Indication: AFFECTIVE DISORDER
  3. QUETIAPINE FUMARATE [Suspect]
     Indication: ANXIETY
  4. QUETIAPINE FUMARATE [Suspect]
     Indication: AFFECTIVE DISORDER
  5. DIPHENHYDRAMINE HYDROCHLORIDE [Concomitant]
     Indication: ANXIETY
  6. LORAZEPAM [Concomitant]
     Indication: ANXIETY
  7. VENLAFAXINE HYDROCHLORIDE [Concomitant]
     Indication: ANXIETY
     Dosage: 225 MG, UNK
  8. VENLAFAXINE HYDROCHLORIDE [Concomitant]
     Indication: DEPRESSION

REACTIONS (1)
  - Drug ineffective [Unknown]
